FAERS Safety Report 10369107 (Version 1)
Quarter: 2014Q1

REPORT INFORMATION
  Report Type: Spontaneous
  Country: US (occurrence: None)
  Receive Date: 20140306
  Receipt Date: 20140306
  Transmission Date: 20141002
  Serious: Yes (Hospitalization)
  Sender: FDA-Public Use
  Company Number: 163-21880-13091419

PATIENT
  Age: 59 Year
  Sex: Male

DRUGS (1)
  1. REVLIMID (LENALIDOMIDE) (25 MILLIGRAM, CAPSULES) [Suspect]
     Indication: RENAL CELL CARCINOMA
     Dosage: 25 MG, 28 IN 28 D, PO
     Route: 048
     Dates: start: 20130213, end: 20130417

REACTIONS (4)
  - Pulmonary oedema [None]
  - Rash [None]
  - Renal cell carcinoma [None]
  - Disease progression [None]
